FAERS Safety Report 5755980-9 (Version None)
Quarter: 2008Q2

REPORT INFORMATION
  Report Type: 
  Country: None (occurrence: None)
  Receive Date: 20080602
  Receipt Date: 20080519
  Transmission Date: 20081010
  Serious: Yes (Other)
  Sender: FDA-Public Use
  Company Number: PHHY2008JP08406

PATIENT

DRUGS (4)
  1. VOLTAREN [Suspect]
     Dosage: 12.5 MG
     Route: 054
  2. DANTRIUM [Concomitant]
  3. EXCEGRAN [Concomitant]
     Route: 048
  4. FAMOTIDINE [Concomitant]

REACTIONS (2)
  - ENEMA ADMINISTRATION [None]
  - SALIVARY HYPERSECRETION [None]
